FAERS Safety Report 24650506 (Version 1)
Quarter: 2024Q4

REPORT INFORMATION
  Report Type: Spontaneous
  Country: US (occurrence: US)
  Receive Date: 20241122
  Receipt Date: 20241122
  Transmission Date: 20250114
  Serious: No
  Sender: ALVOGEN
  Company Number: US-ALVOGEN-2023092421

PATIENT
  Sex: Female

DRUGS (4)
  1. TERIPARATIDE [Suspect]
     Active Substance: TERIPARATIDE
     Indication: Osteoporosis
     Dosage: SKIP A DOSE OF TERIPARATIDE ON THE DAY OF SURGERY, I.E., 31-MAY-2023
  2. TERIPARATIDE [Suspect]
     Active Substance: TERIPARATIDE
     Indication: Osteoporosis
     Dosage: BOX 1: PARTIALLY OPENED?EXPIRATION DATE: UU-JUL-2024?STRENGTH: 250 MCG/ML, 20 MCG PER DOSE
     Dates: start: 20231005
  3. TERIPARATIDE [Suspect]
     Active Substance: TERIPARATIDE
     Indication: Osteoporosis
     Dosage: BOX 2: UNSEALED ?EXPIRATION DATE: UU-SEP-2024?STRENGTH: 250 MCG/ML, 20 MCG PER DOSE
  4. TERIPARATIDE [Suspect]
     Active Substance: TERIPARATIDE
     Indication: Osteoporosis
     Dosage: BOX 3?STRENGTH: 250 MCG/ML, 20 MCG PER DOSE

REACTIONS (4)
  - Device malfunction [Unknown]
  - Device operational issue [Unknown]
  - Product packaging issue [Unknown]
  - Device defective [Unknown]

NARRATIVE: CASE EVENT DATE: 20231001
